FAERS Safety Report 7622208-4 (Version None)
Quarter: 2011Q3

REPORT INFORMATION
  Report Type: 
  Country: None (occurrence: None)
  Receive Date: 20110720
  Receipt Date: 20110601
  Transmission Date: 20111222
  Serious: Yes (Hospitalization, Other)
  Sender: FDA-Public Use
  Company Number: US-BAYER-2011-021605

PATIENT
  Sex: Female
  Weight: 106.58 kg

DRUGS (1)
  1. YASMIN [Suspect]
     Indication: CONTRACEPTION
     Dosage: QD
     Route: 048
     Dates: start: 20020401, end: 20050301

REACTIONS (2)
  - GALLBLADDER DISORDER [None]
  - BILIARY DYSKINESIA [None]
